FAERS Safety Report 22393037 (Version 1)
Quarter: 2023Q2

REPORT INFORMATION
  Report Type: Spontaneous
  Country: US (occurrence: None)
  Receive Date: 20230531
  Receipt Date: 20230531
  Transmission Date: 20230722
  Serious: Yes (Disabling, Other)
  Sender: FDA-Public Use
  Company Number: None

PATIENT
  Age: 74 Year
  Sex: Male
  Weight: 57.6 kg

DRUGS (16)
  1. TRELEGY ELLIPTA [Suspect]
     Active Substance: FLUTICASONE FUROATE\UMECLIDINIUM BROMIDE\VILANTEROL TRIFENATATE
     Indication: Chronic obstructive pulmonary disease
     Dosage: OTHER QUANTITY : 30 INHALATION(S);?FREQUENCY : DAILY;?
     Route: 048
     Dates: start: 20230305
  2. DALIRESP [Concomitant]
     Active Substance: ROFLUMILAST
  3. TACROLIMUS [Concomitant]
     Active Substance: TACROLIMUS
  4. PANTOPRAZOLE [Concomitant]
     Active Substance: PANTOPRAZOLE
  5. MEMANTINE [Concomitant]
     Active Substance: MEMANTINE
  6. MONTELUKAST [Concomitant]
     Active Substance: MONTELUKAST SODIUM
  7. METOPROLOL [Concomitant]
     Active Substance: METOPROLOL
  8. FAMOTIDINE [Concomitant]
  9. LEVETIRACETAM [Concomitant]
     Active Substance: LEVETIRACETAM
  10. PREDNISONE [Concomitant]
     Active Substance: PREDNISONE
  11. TRELEGY ELLIPTA [Concomitant]
     Active Substance: FLUTICASONE FUROATE\UMECLIDINIUM BROMIDE\VILANTEROL TRIFENATATE
  12. FLUTICASONE [Concomitant]
     Active Substance: FLUTICASONE
  13. gerri tuss [Concomitant]
  14. loretadine [Concomitant]
  15. LORAZEPAM [Concomitant]
     Active Substance: LORAZEPAM
  16. PEPTO-BISMOL [Concomitant]
     Active Substance: BISMUTH SUBSALICYLATE

REACTIONS (1)
  - Vision blurred [None]

NARRATIVE: CASE EVENT DATE: 20230305
